FAERS Safety Report 8347014-7 (Version None)
Quarter: 2012Q1

REPORT INFORMATION
  Report Type: 
  Country: None (occurrence: None)
  Receive Date: 20120315
  Receipt Date: 20110119
  Transmission Date: 20120608
  Serious: No
  Sender: FDA-Public Use
  Company Number: PHHY2011US01468

PATIENT
  Age: 55 Year
  Sex: Female

DRUGS (6)
  1. GILENYA [Suspect]
     Indication: MULTIPLE SCLEROSIS
     Dosage: 0.5 MG, QD, ORAL
     Route: 048
     Dates: start: 20101216, end: 20110119
  2. GABAPENTIN [Concomitant]
  3. FLUOXETINE HCL [Concomitant]
  4. AMPYRA [Concomitant]
  5. BACLOFEN [Concomitant]
  6. OXYBUTYNIN [Concomitant]

REACTIONS (2)
  - DIARRHOEA [None]
  - EMOTIONAL DISORDER [None]
